FAERS Safety Report 25213648 (Version 1)
Quarter: 2025Q2

REPORT INFORMATION
  Report Type: Spontaneous
  Country: US (occurrence: None)
  Receive Date: 20250417
  Receipt Date: 20250417
  Transmission Date: 20250716
  Serious: No
  Sender: FDA-CTU
  Company Number: None

PATIENT
  Age: 68 Year
  Sex: Male
  Weight: 70 kg

DRUGS (2)
  1. GAMUNEX-C [Suspect]
     Active Substance: HUMAN IMMUNOGLOBULIN G
     Indication: Parainfluenzae virus infection
     Route: 042
     Dates: start: 20240620, end: 20240620
  2. GAMMAGARD S/D [Suspect]
     Active Substance: HUMAN IMMUNOGLOBULIN G

REACTIONS (5)
  - Infusion related reaction [None]
  - Hypotension [None]
  - Hyperhidrosis [None]
  - Anal incontinence [None]
  - Vomiting [None]

NARRATIVE: CASE EVENT DATE: 20240620
